FAERS Safety Report 15097717 (Version 1)
Quarter: 2018Q2

REPORT INFORMATION
  Report Type: Spontaneous
  Country: US (occurrence: US)
  Receive Date: 20180610
  Receipt Date: 20180610
  Transmission Date: 20180711
  Serious: Yes (Other)
  Sender: FDA-Public Use
  Company Number: None

PATIENT
  Age: 32 Year
  Sex: Male
  Weight: 90 kg

DRUGS (1)
  1. TAMIFLU (GENERIC) [Suspect]
     Active Substance: OSELTAMIVIR PHOSPHATE
     Indication: INFLUENZA
     Route: 048
     Dates: start: 20180531, end: 20180603

REACTIONS (9)
  - Chills [None]
  - Pain [None]
  - Vomiting [None]
  - Headache [None]
  - Ocular discomfort [None]
  - Back pain [None]
  - Musculoskeletal stiffness [None]
  - Pyrexia [None]
  - Hyperhidrosis [None]

NARRATIVE: CASE EVENT DATE: 20180603
